FAERS Safety Report 17909126 (Version 14)
Quarter: 2025Q4

REPORT INFORMATION
  Report Type: Spontaneous
  Country: CA (occurrence: CA)
  Receive Date: 20200617
  Receipt Date: 20251017
  Transmission Date: 20260117
  Serious: Yes (Hospitalization, Other)
  Sender: BRISTOL-MYERS SQUIBB COMPANY
  Company Number: CA-BRISTOL-MYERS SQUIBB COMPANY-BMS-2020-046445

PATIENT
  Sex: Male

DRUGS (87)
  1. APIXABAN [Suspect]
     Active Substance: APIXABAN
     Indication: Product used for unknown indication
  2. APIXABAN [Suspect]
     Active Substance: APIXABAN
  3. APIXABAN [Suspect]
     Active Substance: APIXABAN
  4. SPIRONOLACTONE AND HYDROCHLOROTHIAZIDE [Concomitant]
     Active Substance: HYDROCHLOROTHIAZIDE\SPIRONOLACTONE
     Indication: Product used for unknown indication
  5. SPIRONOLACTONE AND HYDROCHLOROTHIAZIDE [Concomitant]
     Active Substance: HYDROCHLOROTHIAZIDE\SPIRONOLACTONE
  6. SPIRONOLACTONE AND HYDROCHLOROTHIAZIDE [Concomitant]
     Active Substance: HYDROCHLOROTHIAZIDE\SPIRONOLACTONE
  7. AMIODARONE HYDROCHLORIDE [Concomitant]
     Active Substance: AMIODARONE HYDROCHLORIDE
     Indication: Product used for unknown indication
  8. AMIODARONE HYDROCHLORIDE [Concomitant]
     Active Substance: AMIODARONE HYDROCHLORIDE
  9. AMIODARONE HYDROCHLORIDE [Concomitant]
     Active Substance: AMIODARONE HYDROCHLORIDE
  10. AMIODARONE HYDROCHLORIDE [Concomitant]
     Active Substance: AMIODARONE HYDROCHLORIDE
  11. COSENTYX [Concomitant]
     Active Substance: SECUKINUMAB
     Indication: Psoriatic arthropathy
  12. COSENTYX [Concomitant]
     Active Substance: SECUKINUMAB
  13. ENBREL [Concomitant]
     Active Substance: ETANERCEPT
     Indication: Psoriatic arthropathy
  14. METHOTREXATE SODIUM [Concomitant]
     Active Substance: METHOTREXATE SODIUM
     Indication: Psoriatic arthropathy
  15. SULFASALAZINE [Concomitant]
     Active Substance: SULFASALAZINE
     Indication: Product used for unknown indication
  16. SULFASALAZINE [Concomitant]
     Active Substance: SULFASALAZINE
  17. SULFASALAZINE [Concomitant]
     Active Substance: SULFASALAZINE
  18. TALTZ [Concomitant]
     Active Substance: IXEKIZUMAB
     Indication: Psoriatic arthropathy
  19. TALTZ [Concomitant]
     Active Substance: IXEKIZUMAB
  20. TALTZ [Concomitant]
     Active Substance: IXEKIZUMAB
  21. TALTZ [Concomitant]
     Active Substance: IXEKIZUMAB
  22. TALTZ [Concomitant]
     Active Substance: IXEKIZUMAB
  23. TALTZ [Concomitant]
     Active Substance: IXEKIZUMAB
  24. TALTZ [Concomitant]
     Active Substance: IXEKIZUMAB
  25. FOLIC ACID [Concomitant]
     Active Substance: FOLIC ACID
     Indication: Product used for unknown indication
  26. FOLIC ACID [Concomitant]
     Active Substance: FOLIC ACID
  27. FOLIC ACID [Concomitant]
     Active Substance: FOLIC ACID
  28. FOLIC ACID [Concomitant]
     Active Substance: FOLIC ACID
  29. FOLIC ACID [Concomitant]
     Active Substance: FOLIC ACID
  30. FOLIC ACID [Concomitant]
     Active Substance: FOLIC ACID
  31. FOLIC ACID [Concomitant]
     Active Substance: FOLIC ACID
  32. LASIX [Concomitant]
     Active Substance: FUROSEMIDE
     Indication: Product used for unknown indication
  33. LASIX [Concomitant]
     Active Substance: FUROSEMIDE
  34. LASIX [Concomitant]
     Active Substance: FUROSEMIDE
     Dosage: CYCLICAL
  35. LASIX [Concomitant]
     Active Substance: FUROSEMIDE
  36. LASIX [Concomitant]
     Active Substance: FUROSEMIDE
  37. LASIX [Concomitant]
     Active Substance: FUROSEMIDE
  38. LASIX [Concomitant]
     Active Substance: FUROSEMIDE
  39. METOPROLOL TARTRATE [Concomitant]
     Active Substance: METOPROLOL TARTRATE
     Indication: Product used for unknown indication
  40. METOPROLOL TARTRATE [Concomitant]
     Active Substance: METOPROLOL TARTRATE
  41. METOPROLOL TARTRATE [Concomitant]
     Active Substance: METOPROLOL TARTRATE
  42. METOPROLOL TARTRATE [Concomitant]
     Active Substance: METOPROLOL TARTRATE
  43. METOPROLOL TARTRATE [Concomitant]
     Active Substance: METOPROLOL TARTRATE
  44. OMEPRAZOLE [Concomitant]
     Active Substance: OMEPRAZOLE
     Indication: Product used for unknown indication
  45. OMEPRAZOLE [Concomitant]
     Active Substance: OMEPRAZOLE
  46. OMEPRAZOLE [Concomitant]
     Active Substance: OMEPRAZOLE
  47. OMEPRAZOLE [Concomitant]
     Active Substance: OMEPRAZOLE
  48. OMEPRAZOLE [Concomitant]
     Active Substance: OMEPRAZOLE
  49. OMEPRAZOLE [Concomitant]
     Active Substance: OMEPRAZOLE
  50. HYDROXYCHLOROQUINE SULFATE [Concomitant]
     Active Substance: HYDROXYCHLOROQUINE SULFATE
     Indication: Psoriatic arthropathy
  51. PREDNISONE [Concomitant]
     Active Substance: PREDNISONE
     Indication: Psoriatic arthropathy
  52. PREDNISONE [Concomitant]
     Active Substance: PREDNISONE
  53. PREDNISONE [Concomitant]
     Active Substance: PREDNISONE
  54. PREDNISONE [Concomitant]
     Active Substance: PREDNISONE
  55. RAMIPRIL [Concomitant]
     Active Substance: RAMIPRIL
     Indication: Psoriatic arthropathy
  56. RAMIPRIL [Concomitant]
     Active Substance: RAMIPRIL
  57. RAMIPRIL [Concomitant]
     Active Substance: RAMIPRIL
  58. RAMIPRIL [Concomitant]
     Active Substance: RAMIPRIL
  59. IXEKIZUMAB [Concomitant]
     Active Substance: IXEKIZUMAB
     Indication: Psoriatic arthropathy
  60. IXEKIZUMAB [Concomitant]
     Active Substance: IXEKIZUMAB
  61. IXEKIZUMAB [Concomitant]
     Active Substance: IXEKIZUMAB
  62. IXEKIZUMAB [Concomitant]
     Active Substance: IXEKIZUMAB
  63. METHOTREXATE [Concomitant]
     Active Substance: METHOTREXATE
     Indication: Psoriatic arthropathy
  64. METHOTREXATE [Concomitant]
     Active Substance: METHOTREXATE
  65. METHOTREXATE [Concomitant]
     Active Substance: METHOTREXATE
  66. SPIRONOLACTONE [Concomitant]
     Active Substance: SPIRONOLACTONE
     Indication: Product used for unknown indication
  67. SPIRONOLACTONE [Concomitant]
     Active Substance: SPIRONOLACTONE
  68. SPIRONOLACTONE [Concomitant]
     Active Substance: SPIRONOLACTONE
  69. SPIRONOLACTONE [Concomitant]
     Active Substance: SPIRONOLACTONE
  70. SPIRONOLACTONE [Concomitant]
     Active Substance: SPIRONOLACTONE
  71. SPIRONOLACTONE [Concomitant]
     Active Substance: SPIRONOLACTONE
  72. SPIRONOLACTONE [Concomitant]
     Active Substance: SPIRONOLACTONE
  73. SPIRONOLACTONE [Concomitant]
     Active Substance: SPIRONOLACTONE
  74. SPIRONOLACTONE [Concomitant]
     Active Substance: SPIRONOLACTONE
  75. HYDROCHLOROTHIAZIDE [Concomitant]
     Active Substance: HYDROCHLOROTHIAZIDE
     Indication: Product used for unknown indication
  76. HYDROCHLOROTHIAZIDE [Concomitant]
     Active Substance: HYDROCHLOROTHIAZIDE
  77. HYDROCHLOROTHIAZIDE [Concomitant]
     Active Substance: HYDROCHLOROTHIAZIDE
  78. HYDROCHLOROTHIAZIDE [Concomitant]
     Active Substance: HYDROCHLOROTHIAZIDE
  79. HYDROCHLOROTHIAZIDE [Concomitant]
     Active Substance: HYDROCHLOROTHIAZIDE
  80. HYDROCHLOROTHIAZIDE [Concomitant]
     Active Substance: HYDROCHLOROTHIAZIDE
  81. HYDROCHLOROTHIAZIDE [Concomitant]
     Active Substance: HYDROCHLOROTHIAZIDE
  82. HYDROCHLOROTHIAZIDE [Concomitant]
     Active Substance: HYDROCHLOROTHIAZIDE
  83. HYDROCHLOROTHIAZIDE [Concomitant]
     Active Substance: HYDROCHLOROTHIAZIDE
  84. SPIRONOLACTONE [Concomitant]
     Active Substance: SPIRONOLACTONE
     Indication: Product used for unknown indication
  85. SPIRONOLACTONE [Concomitant]
     Active Substance: SPIRONOLACTONE
  86. SPIRONOLACTONE [Concomitant]
     Active Substance: SPIRONOLACTONE
  87. SPIRONOLACTONE [Concomitant]
     Active Substance: SPIRONOLACTONE

REACTIONS (4)
  - Ejection fraction decreased [Unknown]
  - Cardiac failure congestive [Unknown]
  - Off label use [Unknown]
  - Hospitalisation [Unknown]
